FAERS Safety Report 8425306-0 (Version None)
Quarter: 2012Q2

REPORT INFORMATION
  Report Type: 
  Country: None (occurrence: None)
  Receive Date: 20120611
  Receipt Date: 20120530
  Transmission Date: 20120825
  Serious: Yes (Hospitalization)
  Sender: FDA-Public Use
  Company Number: US-JNJFOC-20120601032

PATIENT
  Sex: Female
  Weight: 74.39 kg

DRUGS (3)
  1. REMICADE [Suspect]
     Indication: RHEUMATOID ARTHRITIS
     Route: 042
     Dates: start: 20080101, end: 20120224
  2. SYNTHROID [Concomitant]
     Indication: HYPOTHYROIDISM
     Route: 048
  3. NEURONTIN [Concomitant]
     Indication: PAIN
     Route: 048

REACTIONS (6)
  - SEPSIS [None]
  - IMMUNE SYSTEM DISORDER [None]
  - PAIN [None]
  - ENDOCARDITIS BACTERIAL [None]
  - MENINGITIS BACTERIAL [None]
  - PNEUMONIA [None]
